FAERS Safety Report 7537143-X (Version None)
Quarter: 2011Q2

REPORT INFORMATION
  Report Type: 
  Country: None (occurrence: None)
  Receive Date: 20110609
  Receipt Date: 20110609
  Transmission Date: 20111010
  Serious: Yes (Hospitalization)
  Sender: FDA-Public Use
  Company Number: PHHO2010LV03213

PATIENT
  Sex: Female
  Weight: 31 kg

DRUGS (5)
  1. CIPROFLOXACIN [Concomitant]
     Dosage: UNK
     Dates: start: 20090915, end: 20090918
  2. COLOMYCIN [Concomitant]
     Dosage: UNK
     Dates: start: 20090915, end: 20090918
  3. PULMOZYME [Concomitant]
     Dosage: UNK
     Dates: start: 20080923
  4. TOBRAMYCIN [Suspect]
     Indication: CYSTIC FIBROSIS
     Dosage: DOUBLE BLIND
     Dates: start: 20090828, end: 20090910
  5. AZITHROMYCIN [Concomitant]
     Dosage: UNK
     Dates: start: 20090120

REACTIONS (5)
  - COUGH [None]
  - PRODUCTIVE COUGH [None]
  - BRONCHITIS [None]
  - DRUG INEFFECTIVE [None]
  - DISEASE PROGRESSION [None]
